FAERS Safety Report 4902888-4 (Version None)
Quarter: 2006Q1

REPORT INFORMATION
  Report Type: 
  Country: None (occurrence: None)
  Receive Date: 20060207
  Receipt Date: 20060131
  Transmission Date: 20060701
  Serious: Yes (Death)
  Sender: FDA-Public Use
  Company Number: PHBS2006DE01822

PATIENT
  Age: 63 Year
  Sex: Female

DRUGS (1)
  1. BACLOFEN [Suspect]
     Route: 065

REACTIONS (5)
  - FRACTURE [None]
  - HAEMATOMA [None]
  - INTENTIONAL OVERDOSE [None]
  - INTERVERTEBRAL DISC INJURY [None]
  - SKULL FRACTURE [None]
